FAERS Safety Report 8529555-2 (Version None)
Quarter: 2012Q3

REPORT INFORMATION
  Report Type: 
  Country: None (occurrence: None)
  Receive Date: 20120723
  Receipt Date: 20120709
  Transmission Date: 20120928
  Serious: Yes (Disabling, Other)
  Sender: FDA-Public Use
  Company Number: GB-MYLANLABS-2012S1013843

PATIENT
  Age: 17 Year
  Sex: Male
  Weight: 51 kg

DRUGS (4)
  1. CARMELLOSE SODIUM [Concomitant]
     Indication: PRODUCT USED FOR UNKNOWN INDICATION
  2. CARBOMER [Concomitant]
     Indication: PRODUCT USED FOR UNKNOWN INDICATION
  3. ISOTRETINOIN [Suspect]
     Indication: ACNE
     Route: 048
     Dates: start: 20110301, end: 20110725
  4. WHITE SOFT PARAFFIN [Concomitant]
     Indication: PRODUCT USED FOR UNKNOWN INDICATION

REACTIONS (3)
  - HEADACHE [None]
  - MEIBOMIAN GLAND DYSFUNCTION [None]
  - DRY EYE [None]
